FAERS Safety Report 10393216 (Version 1)
Quarter: 2014Q3

REPORT INFORMATION
  Report Type: Spontaneous
  Country: DK (occurrence: FR)
  Receive Date: 20140819
  Receipt Date: 20140819
  Transmission Date: 20150326
  Serious: Yes (Hospitalization)
  Sender: FDA-Public Use
  Company Number: FR-FRI-1000069955

PATIENT
  Age: 74 Year
  Sex: Female

DRUGS (19)
  1. DILTIAZEM LP [Concomitant]
     Dosage: 300 MG
  2. LYRICA [Concomitant]
     Active Substance: PREGABALIN
     Dosage: 50 MG
  3. LAROXYL [Concomitant]
     Active Substance: AMITRIPTYLINE
     Dosage: 15 GTT
  4. ECONAZOLE [Concomitant]
     Active Substance: ECONAZOLE
     Dosage: 1 DF
  5. DIGOXINE [Concomitant]
     Active Substance: DIGOXIN
     Dosage: 0.125 MG
  6. DIFFU K [Concomitant]
     Active Substance: POTASSIUM CHLORIDE
     Dosage: 4800 MG
  7. LOVENOX [Suspect]
     Active Substance: ENOXAPARIN SODIUM
     Indication: ATRIAL FIBRILLATION
     Dosage: 1.4 ML
     Route: 058
     Dates: start: 201404, end: 20140610
  8. APROVEL [Concomitant]
     Active Substance: IRBESARTAN
     Dosage: 150 MG
  9. DOLIPRANE [Concomitant]
     Active Substance: ACETAMINOPHEN
     Dosage: 4 GRAM
  10. MOTILIUM [Concomitant]
     Active Substance: DOMPERIDONE
  11. ESCITALOPRAM [Suspect]
     Active Substance: ESCITALOPRAM OXALATE
     Dosage: 5 MG
     Route: 048
  12. TEMERIT [Concomitant]
     Active Substance: NEBIVOLOL
     Dosage: 5 MG
  13. TOPALGIC LP [Concomitant]
     Active Substance: TRAMADOL
     Dosage: 300 MG
  14. IMOVANE [Concomitant]
     Active Substance: ZOPICLONE
     Dosage: 7.5 MG
  15. COUMADINE [Suspect]
     Active Substance: WARFARIN SODIUM
     Indication: ATRIAL FIBRILLATION
     Dosage: 9 MG
     Route: 048
     Dates: start: 20140514, end: 20140610
  16. OMEPRAZOLE. [Concomitant]
     Active Substance: OMEPRAZOLE
     Dosage: 20 MG
  17. GAVISCON [Concomitant]
     Active Substance: ALUMINUM HYDROXIDE\MAGNESIUM CARBONATE
  18. XANAX [Concomitant]
     Active Substance: ALPRAZOLAM
     Dosage: 0.75
  19. LASILIX [Concomitant]
     Active Substance: FUROSEMIDE
     Dosage: 60 MG

REACTIONS (2)
  - Cerebral haematoma [Recovered/Resolved with Sequelae]
  - Drug interaction [Recovered/Resolved with Sequelae]

NARRATIVE: CASE EVENT DATE: 20140610
